FAERS Safety Report 9134587 (Version 1)
Quarter: 2013Q1

REPORT INFORMATION
  Report Type: Spontaneous
  Country: GB (occurrence: GB)
  Receive Date: 20130304
  Receipt Date: 20130304
  Transmission Date: 20140127
  Serious: Yes (Other)
  Sender: FDA-Public Use
  Company Number: PHFR2013GB001458

PATIENT
  Age: 1 Year
  Sex: Female

DRUGS (6)
  1. OCTREOTIDE [Suspect]
     Route: 042
  2. SPIRONOLACTONE [Concomitant]
     Route: 048
  3. CASPOFUNGIN [Concomitant]
     Route: 042
  4. MORPHINE [Concomitant]
     Indication: ANALGESIC THERAPY
     Route: 048
  5. CHLORAL [Concomitant]
     Indication: SEDATIVE THERAPY
     Route: 048
  6. FUROSEMIDE [Concomitant]
     Indication: DIURETIC THERAPY
     Route: 048

REACTIONS (1)
  - Supraventricular tachycardia [Recovered/Resolved]
